FAERS Safety Report 4831602-6 (Version None)
Quarter: 2005Q4

REPORT INFORMATION
  Report Type: 
  Country: None (occurrence: None)
  Receive Date: 20051116
  Receipt Date: 20051103
  Transmission Date: 20060501
  Serious: Yes (Disabling, Other)
  Sender: FDA-Public Use
  Company Number: 2005151166

PATIENT
  Sex: Female
  Weight: 88.4514 kg

DRUGS (10)
  1. CELEBREX [Suspect]
     Indication: ARTHRALGIA
     Dosage: ORAL
     Route: 048
     Dates: end: 20051102
  2. CELEBREX [Suspect]
     Indication: SHOULDER PAIN
     Dosage: ORAL
     Route: 048
     Dates: end: 20051102
  3. OXYCODONE HCL [Suspect]
     Indication: ILL-DEFINED DISORDER
     Dosage: 20 MG (10 MG, 2 IN 1 D), ORAL
     Route: 048
  4. VICODIN [Suspect]
     Indication: ILL-DEFINED DISORDER
     Dosage: 500 MG (250 MG, 2 IN 1 D), ORAL
     Route: 048
  5. WELLBUTRIN [Suspect]
     Indication: ILL-DEFINED DISORDER
     Dosage: (2 IN 1 D), ORAL
     Route: 048
  6. DEPAKOTE [Suspect]
     Indication: ILL-DEFINED DISORDER
  7. ALL OTHER THERAPEUTIC PRODUCTS (ALL OTHER THERAPEUTIC PRODUCTS) [Suspect]
     Indication: ILL-DEFINED DISORDER
     Dosage: ORAL
     Route: 048
  8. ATARAX [Concomitant]
  9. BENADRYL [Concomitant]
  10. STOOL SOFTENER [Concomitant]

REACTIONS (13)
  - ABASIA [None]
  - ARTHRITIS [None]
  - ATROPHY [None]
  - DRUG INEFFECTIVE [None]
  - DRUG INTERACTION [None]
  - MUSCLE STRAIN [None]
  - NONSPECIFIC REACTION [None]
  - OSTEOPOROSIS [None]
  - POST PROCEDURAL COMPLICATION [None]
  - RASH ERYTHEMATOUS [None]
  - ROTATOR CUFF SYNDROME [None]
  - SURGICAL PROCEDURE REPEATED [None]
  - WEIGHT INCREASED [None]
